FAERS Safety Report 14435291 (Version 1)
Quarter: 2018Q1

REPORT INFORMATION
  Report Type: Spontaneous
  Country: US (occurrence: US)
  Receive Date: 20180124
  Receipt Date: 20180124
  Transmission Date: 20180509
  Serious: No
  Sender: FDA-Public Use
  Company Number: None

PATIENT
  Age: 53 Year
  Sex: Male

DRUGS (1)
  1. STELARA [Suspect]
     Active Substance: USTEKINUMAB
     Indication: PSORIATIC ARTHROPATHY
     Dosage: 90MG EVERY 12 WEEKS SUBCUTANEOUS
     Route: 058
     Dates: start: 20161213

REACTIONS (5)
  - Pain in extremity [None]
  - Pneumonia [None]
  - Psoriatic arthropathy [None]
  - Wheelchair user [None]
  - Depression [None]
